FAERS Safety Report 6800492-4 (Version None)
Quarter: 2010Q2

REPORT INFORMATION
  Report Type: 
  Country: None (occurrence: None)
  Receive Date: 20100629
  Receipt Date: 20100617
  Transmission Date: 20101027
  Serious: No
  Sender: FDA-Public Use
  Company Number: US-BIOGENIDEC-2010BI021197

PATIENT
  Age: 53 Year
  Sex: Female

DRUGS (1)
  1. TYSABRI [Suspect]
     Indication: MULTIPLE SCLEROSIS
     Route: 042
     Dates: start: 20070914

REACTIONS (7)
  - ASTHENIA [None]
  - BLADDER SPASM [None]
  - DEVICE MALFUNCTION [None]
  - DYSURIA [None]
  - FALL [None]
  - MOBILITY DECREASED [None]
  - URINARY TRACT INFECTION [None]
